FAERS Safety Report 8011072-X (Version None)
Quarter: 2011Q4

REPORT INFORMATION
  Report Type: 
  Country: None (occurrence: None)
  Receive Date: 20111228
  Receipt Date: 20111221
  Transmission Date: 20120403
  Serious: Yes (Other)
  Sender: FDA-Public Use
  Company Number: DE-B.I. PHARMACEUTICALS,INC./RIDGEFIELD-2011-DE-06510DE

PATIENT
  Age: 85 Year
  Sex: Female
  Weight: 90 kg

DRUGS (6)
  1. PRADAXA [Suspect]
     Indication: TACHYARRHYTHMIA
     Dosage: 220 MG
     Route: 048
     Dates: start: 20111102, end: 20111116
  2. BETABLOCKER [Concomitant]
  3. TILIDIN [Concomitant]
     Indication: PAIN
     Route: 048
     Dates: start: 20100101
  4. SPIRONOLACTONE [Concomitant]
     Indication: CARDIAC FAILURE
     Dosage: 0.5 ANZ
     Route: 048
     Dates: start: 20100101
  5. TORSEMIDE [Concomitant]
     Indication: CARDIAC FAILURE
     Dosage: 30 MG
     Route: 048
     Dates: start: 20100101
  6. METOPROLOL 100MG RET [Concomitant]
     Indication: HYPERTENSION
     Dosage: 200 MG
     Route: 048
     Dates: start: 20100101

REACTIONS (8)
  - CIRCULATORY COLLAPSE [None]
  - BLOOD URIC ACID INCREASED [None]
  - GLOMERULAR FILTRATION RATE DECREASED [None]
  - FLANK PAIN [None]
  - BLOOD CREATININE INCREASED [None]
  - RENAL FAILURE ACUTE [None]
  - BREAST PAIN [None]
  - RENAL FAILURE [None]
